FAERS Safety Report 15757018 (Version 1)
Quarter: 2018Q4

REPORT INFORMATION
  Report Type: Spontaneous
  Country: US (occurrence: US)
  Receive Date: 20181224
  Receipt Date: 20181224
  Transmission Date: 20190205
  Serious: Yes (Hospitalization)
  Sender: FDA-Public Use
  Company Number: None

PATIENT
  Age: 48 Year
  Sex: Male

DRUGS (7)
  1. AZATHIOPRINE. [Concomitant]
     Active Substance: AZATHIOPRINE
  2. KOMBIGLYZE XR [Concomitant]
     Active Substance: METFORMIN HYDROCHLORIDE\SAXAGLIPTIN HYDROCHLORIDE
  3. NOVOLIN N [Concomitant]
     Active Substance: INSULIN HUMAN
  4. LANTUS [Concomitant]
     Active Substance: INSULIN GLARGINE
  5. HUMIRA [Suspect]
     Active Substance: ADALIMUMAB
     Dosage: ?          OTHER FREQUENCY:QW;?
     Route: 058
     Dates: start: 20180523
  6. FENOFIBRATE. [Concomitant]
     Active Substance: FENOFIBRATE
  7. PREDNISONE. [Concomitant]
     Active Substance: PREDNISONE

REACTIONS (2)
  - Condition aggravated [None]
  - Constipation [None]

NARRATIVE: CASE EVENT DATE: 20181201
